FAERS Safety Report 8223018-X (Version None)
Quarter: 2012Q1

REPORT INFORMATION
  Report Type: 
  Country: None (occurrence: None)
  Receive Date: 20120320
  Receipt Date: 20120312
  Transmission Date: 20120608
  Serious: Yes (Hospitalization)
  Sender: FDA-Public Use
  Company Number: US-ASTRAZENECA-2012SE17033

PATIENT
  Age: 45 Year
  Sex: Female

DRUGS (3)
  1. TRAZODONE HCL [Concomitant]
  2. SEROQUEL [Suspect]
     Indication: SLEEP DISORDER
     Route: 048
  3. SEROQUEL [Suspect]
     Indication: DEPRESSION
     Route: 048

REACTIONS (6)
  - DRUG DOSE OMISSION [None]
  - DEPRESSION [None]
  - ANXIETY [None]
  - MALAISE [None]
  - PANIC ATTACK [None]
  - ADVERSE EVENT [None]
